FAERS Safety Report 4355954-9 (Version None)
Quarter: 2004Q2

REPORT INFORMATION
  Report Type: 
  Country: None (occurrence: None)
  Receive Date: 20040510
  Receipt Date: 20040429
  Transmission Date: 20050107
  Serious: Yes (Hospitalization)
  Sender: FDA-Public Use
  Company Number: 2004211311GB

PATIENT
  Age: 44 Year
  Sex: Male
  Weight: 68 kg

DRUGS (2)
  1. NICORETTE [Suspect]
     Indication: SMOKING CESSATION THERAPY
     Dosage: 15 MG TRANSDERMAL
     Route: 062
     Dates: start: 20040221, end: 20040229
  2. LITHIUM (LITHIUM) [Concomitant]

REACTIONS (3)
  - BIPOLAR DISORDER [None]
  - DISEASE RECURRENCE [None]
  - INSOMNIA [None]
